FAERS Safety Report 25077470 (Version 1)
Quarter: 2025Q1

REPORT INFORMATION
  Report Type: Spontaneous
  Country: US (occurrence: US)
  Receive Date: 20250314
  Receipt Date: 20250314
  Transmission Date: 20250409
  Serious: No
  Sender: ELI LILLY AND COMPANY
  Company Number: US-ELI_LILLY_AND_COMPANY-US202503010471

PATIENT
  Age: 52 Year
  Sex: Female

DRUGS (1)
  1. TIRZEPATIDE [Suspect]
     Active Substance: TIRZEPATIDE
     Indication: Product used for unknown indication
     Dosage: 0.5 MG, WEEKLY (1/W)
     Route: 065

REACTIONS (3)
  - Weight decreased [Unknown]
  - Product tampering [Unknown]
  - Constipation [Unknown]
